FAERS Safety Report 11827987 (Version 1)
Quarter: 2015Q4

REPORT INFORMATION
  Report Type: Report from Study
  Country: US (occurrence: US)
  Receive Date: 20151211
  Receipt Date: 20151211
  Transmission Date: 20160305
  Serious: No
  Sender: FDA-Public Use
  Company Number: US-CELGENEUS-USA-2015110724

PATIENT

DRUGS (1)
  1. REVLIMID [Suspect]
     Active Substance: LENALIDOMIDE
     Indication: PRODUCT USED FOR UNKNOWN INDICATION
     Route: 048
     Dates: start: 201001

REACTIONS (5)
  - Neuropathy peripheral [Unknown]
  - Oral pain [Unknown]
  - Diarrhoea [Unknown]
  - Fatigue [Unknown]
  - Glossodynia [Unknown]
